FAERS Safety Report 8048940-9 (Version None)
Quarter: 2012Q1

REPORT INFORMATION
  Report Type: 
  Country: None (occurrence: None)
  Receive Date: 20120117
  Receipt Date: 20120113
  Transmission Date: 20120608
  Serious: No
  Sender: FDA-Public Use
  Company Number: US-PFIZER INC-2012010999

PATIENT
  Sex: Female

DRUGS (2)
  1. HYDROCORTISONE [Concomitant]
     Dosage: UNK
  2. VFEND [Suspect]
     Indication: PROPHYLAXIS
     Dosage: 6 MG/ML, 2X/DAY

REACTIONS (1)
  - DRUG LEVEL DECREASED [None]
